FAERS Safety Report 9173964 (Version 1)
Quarter: 2013Q1

REPORT INFORMATION
  Report Type: Report from Study
  Country: IN (occurrence: IN)
  Receive Date: 20130320
  Receipt Date: 20130320
  Transmission Date: 20140127
  Serious: Yes (Other)
  Sender: FDA-Public Use
  Company Number: IN-ASTRAZENECA-2013SE16258

PATIENT
  Sex: 0

DRUGS (10)
  1. BUPIVACAINE [Suspect]
     Indication: NERVE BLOCK
     Dosage: 0.3 ML/KG OF BUPIVACAINE
     Route: 053
  2. LIDOCAINE [Suspect]
     Indication: INFILTRATION ANAESTHESIA
     Route: 050
  3. DIAZEPAM [Concomitant]
     Indication: PERIOPERATIVE ANALGESIA
     Route: 048
  4. FENTANYL [Concomitant]
     Indication: GENERAL ANAESTHESIA
     Route: 042
  5. PROPOFOL [Concomitant]
     Indication: GENERAL ANAESTHESIA
     Route: 042
  6. VECURONIUM BROMIDE [Concomitant]
     Indication: MUSCLE RELAXANT THERAPY
  7. VECURONIUM BROMIDE [Concomitant]
     Indication: MAINTENANCE OF ANAESTHESIA
  8. OXYGEN [Concomitant]
     Indication: MAINTENANCE OF ANAESTHESIA
  9. NITROUS OXIDE [Concomitant]
     Indication: MAINTENANCE OF ANAESTHESIA
  10. ISOFLURANE [Concomitant]
     Indication: MAINTENANCE OF ANAESTHESIA

REACTIONS (1)
  - Procedural hypotension [Unknown]
